FAERS Safety Report 7236255-8 (Version None)
Quarter: 2010Q4

REPORT INFORMATION
  Report Type: 
  Country: None (occurrence: None)
  Receive Date: 20101130
  Receipt Date: 20100720
  Transmission Date: 20110411
  Serious: Yes (Disabling)
  Sender: FDA-Public Use
  Company Number: 20100720CINRY1551

PATIENT
  Age: 69 Year
  Sex: Male

DRUGS (2)
  1. CINRYZE [Suspect]
     Indication: HEREDITARY ANGIOEDEMA
     Dosage: (1000 UNIT,2 IN 1 WK),INTRAVENOUS
     Route: 042
     Dates: start: 20100401
  2. STANOZOLOL [Concomitant]

REACTIONS (2)
  - DRUG EFFECT DECREASED [None]
  - HEREDITARY ANGIOEDEMA [None]
